FAERS Safety Report 18556547 (Version 18)
Quarter: 2022Q3

REPORT INFORMATION
  Report Type: Report from Study
  Country: US (occurrence: US)
  Receive Date: 20201128
  Receipt Date: 20220813
  Transmission Date: 20221027
  Serious: Yes (Other)
  Sender: FDA-Public Use
  Company Number: US-SHIRE-US202017859

PATIENT
  Sex: Female

DRUGS (3)
  1. HUMAN IMMUNOGLOBULIN G [Suspect]
     Active Substance: HUMAN IMMUNOGLOBULIN G
     Indication: Primary immunodeficiency syndrome
     Dosage: 40 GRAM
     Route: 042
  2. GAMMAGARD S/D [Suspect]
     Active Substance: HUMAN IMMUNOGLOBULIN G
     Indication: Primary immunodeficiency syndrome
     Dosage: UNK
     Route: 065
  3. GAMMAGARD S/D [Suspect]
     Active Substance: HUMAN IMMUNOGLOBULIN G
     Indication: Primary immunodeficiency syndrome
     Dosage: UNK
     Route: 065

REACTIONS (51)
  - Rheumatoid arthritis [Unknown]
  - Von Willebrand^s disease [Unknown]
  - Retinal detachment [Unknown]
  - Nerve root injury [Unknown]
  - Pneumonia [Unknown]
  - Nephrolithiasis [Unknown]
  - Pulmonary fibrosis [Unknown]
  - Haemorrhagic disorder [Not Recovered/Not Resolved]
  - Dermatitis contact [Unknown]
  - Upper respiratory tract infection [Unknown]
  - Insomnia [Unknown]
  - Osteoarthritis [Unknown]
  - Spinal stenosis [Unknown]
  - Cyst [Unknown]
  - Tooth fracture [Unknown]
  - Feeling abnormal [Not Recovered/Not Resolved]
  - Illness [Unknown]
  - Inflammation [Unknown]
  - Vocal cord cyst [Unknown]
  - Unevaluable event [Unknown]
  - Muscle strain [Unknown]
  - Fall [Unknown]
  - Localised infection [Unknown]
  - Therapy interrupted [Unknown]
  - Food poisoning [Unknown]
  - Intervertebral disc protrusion [Unknown]
  - Skin laceration [Unknown]
  - Asthma [Unknown]
  - Infectious mononucleosis [Unknown]
  - Neoplasm skin [Unknown]
  - Hypovitaminosis [Unknown]
  - Malabsorption [Unknown]
  - Fungal infection [Unknown]
  - Infusion related reaction [Unknown]
  - Vomiting [Unknown]
  - Pyrexia [Unknown]
  - Migraine [Unknown]
  - Headache [Unknown]
  - Spondylitis [Unknown]
  - Lymphadenopathy [Unknown]
  - Hypoaesthesia [Unknown]
  - Fatigue [Unknown]
  - Multiple allergies [Unknown]
  - Vitamin B6 decreased [Unknown]
  - Blood pressure increased [Unknown]
  - Spinal pain [Unknown]
  - Uterine pain [Unknown]
  - Wound [Unknown]
  - Asthenia [Unknown]
  - Eye pain [Unknown]
  - Product dose omission issue [Unknown]
